FAERS Safety Report 6261118-4 (Version None)
Quarter: 2009Q3

REPORT INFORMATION
  Report Type: 
  Country: None (occurrence: None)
  Receive Date: 20090709
  Receipt Date: 20081118
  Transmission Date: 20100115
  Serious: No
  Sender: FDA-Public Use
  Company Number: US-KINGPHARMUSA00001-K200801329

PATIENT
  Sex: Female

DRUGS (7)
  1. LEVOXYL [Suspect]
     Dosage: 25 MCG, UNK
     Route: 048
  2. LEVOXYL [Suspect]
     Dosage: 50 MCG, UNK
     Route: 048
  3. LEVOXYL [Suspect]
     Dosage: 75 MCG, UNK
     Route: 048
  4. LEVOXYL [Suspect]
     Dosage: 100 MCG, UNK
     Route: 048
  5. STRATTERA [Concomitant]
     Indication: ATTENTION DEFICIT/HYPERACTIVITY DISORDER
     Dosage: UNK
  6. VITAMINS NOS [Concomitant]
  7. IODINE [Concomitant]
     Dosage: UNK

REACTIONS (4)
  - ABDOMINAL DISCOMFORT [None]
  - DYSPEPSIA [None]
  - ERUCTATION [None]
  - FLATULENCE [None]
